FAERS Safety Report 9097731 (Version 2)
Quarter: 2013Q1

REPORT INFORMATION
  Report Type: Report from Study
  Country: DE (occurrence: DE)
  Receive Date: 20130212
  Receipt Date: 20130225
  Transmission Date: 20140127
  Serious: Yes (Hospitalization)
  Sender: FDA-Public Use
  Company Number: PHHY2013DE006337

PATIENT
  Sex: 0

DRUGS (6)
  1. ICL670A [Suspect]
     Indication: IRON OVERLOAD
     Dosage: 1500 MG, DAILY
     Dates: start: 20120330, end: 20120704
  2. ICL670A [Suspect]
     Dosage: 1500 MG, DAILY
     Dates: start: 20120801
  3. MIRTAZAPINE [Concomitant]
     Dosage: 30 MG, DAILY
     Dates: start: 20120515
  4. SIMVASTATIN [Concomitant]
     Dosage: 20 MG, DALY
     Dates: start: 20120831
  5. CIPRAMIL [Concomitant]
     Dosage: 20 MG, DAILY
     Dates: start: 20120831
  6. CITALOPRAM [Concomitant]
     Dosage: 30 MG, DAILY
     Dates: start: 20120515, end: 20120831

REACTIONS (3)
  - Cerebral infarction [Recovered/Resolved]
  - Ischaemic stroke [Recovered/Resolved]
  - Motor dysfunction [Recovered/Resolved]
